FAERS Safety Report 14261931 (Version 1)
Quarter: 2017Q4

REPORT INFORMATION
  Report Type: Spontaneous
  Country: CN (occurrence: CN)
  Receive Date: 20171208
  Receipt Date: 20171208
  Transmission Date: 20180321
  Serious: Yes (Other)
  Sender: FDA-Public Use
  Company Number: CN-BAYER-2017-237991

PATIENT
  Age: 77 Year
  Sex: Male
  Weight: 80 kg

DRUGS (2)
  1. ARGATROBAN. [Concomitant]
     Active Substance: ARGATROBAN
     Indication: CEREBROVASCULAR ACCIDENT
     Dosage: 10 MG, QD
     Route: 041
     Dates: start: 20171004, end: 20171012
  2. BAYASPIRIN 100 MG [Suspect]
     Active Substance: ASPIRIN
     Indication: CEREBROVASCULAR ACCIDENT
     Dosage: 100 MG, QD
     Route: 048
     Dates: start: 20171004, end: 20171012

REACTIONS (1)
  - Haemorrhagic cerebral infarction [Recovering/Resolving]

NARRATIVE: CASE EVENT DATE: 20171012
